FAERS Safety Report 24273786 (Version 1)
Quarter: 2024Q3

REPORT INFORMATION
  Report Type: Spontaneous
  Country: US (occurrence: US)
  Receive Date: 20240902
  Receipt Date: 20240902
  Transmission Date: 20241017
  Serious: No
  Sender: ASTELLAS
  Company Number: US-ASTELLAS-2024US010398

PATIENT
  Age: 75 Year
  Sex: Male

DRUGS (2)
  1. PADCEV [Suspect]
     Active Substance: ENFORTUMAB VEDOTIN-EJFV
     Indication: Bladder cancer stage IV
     Dosage: 80 MG, CYCLIC (ADMINISTER OVER 30 MINUTES, 21-DAY CYCLE, DAYS 1,8)
     Route: 042
     Dates: start: 20240304
  2. PADCEV [Suspect]
     Active Substance: ENFORTUMAB VEDOTIN-EJFV
     Dosage: 80 MG, CYCLIC (ADMINISTER OVER 30 MINUTES, 21-DAY CYCLE, DAYS 1,8)
     Route: 042
     Dates: start: 20240401

REACTIONS (2)
  - COVID-19 [Recovered/Resolved]
  - Off label use [Unknown]

NARRATIVE: CASE EVENT DATE: 20240304
